FAERS Safety Report 11714441 (Version 10)
Quarter: 2017Q1

REPORT INFORMATION
  Report Type: Spontaneous
  Country: US (occurrence: US)
  Receive Date: 20151109
  Receipt Date: 20170105
  Transmission Date: 20170428
  Serious: Yes (Other)
  Sender: FDA-Public Use
  Company Number: PHEH2015US022669

PATIENT
  Sex: Female
  Weight: 50.79 kg

DRUGS (3)
  1. ONDANSETRON HYDROCHLORIDE. [Suspect]
     Active Substance: ONDANSETRON HYDROCHLORIDE
     Indication: PRODUCT USED FOR UNKNOWN INDICATION
     Dosage: 4 TO 8 MG
     Route: 048
  2. ONDANSETRON. [Suspect]
     Active Substance: ONDANSETRON
     Indication: VOMITING IN PREGNANCY
     Dosage: 4 MG TO 8 MG
     Route: 065
     Dates: start: 201406, end: 201411
  3. ZOFRAN ODT [Suspect]
     Active Substance: ONDANSETRON HYDROCHLORIDE
     Indication: VOMITING IN PREGNANCY
     Dosage: 8 MG, Q8H
     Route: 048
     Dates: start: 20140811, end: 20150108

REACTIONS (14)
  - Pain [Unknown]
  - Injury [Unknown]
  - Anxiety [Unknown]
  - Product use issue [Unknown]
  - Vulvovaginal candidiasis [Unknown]
  - Malaise [Unknown]
  - Mirror syndrome [Unknown]
  - Placental disorder [Unknown]
  - Stillbirth [Unknown]
  - Fibrosis [Unknown]
  - Maternal exposure during pregnancy [Unknown]
  - Emotional distress [Unknown]
  - Pre-eclampsia [Unknown]
  - Urinary tract infection [Unknown]
